FAERS Safety Report 21257853 (Version 1)
Quarter: 2022Q3

REPORT INFORMATION
  Report Type: Report from Study
  Country: GB (occurrence: GB)
  Receive Date: 20220826
  Receipt Date: 20220826
  Transmission Date: 20221027
  Serious: Yes (Death, Congenital Anomaly, Other)
  Sender: FDA-Public Use
  Company Number: None

PATIENT
  Age: 4 Day
  Sex: Male

DRUGS (31)
  1. ABACAVIR\LAMIVUDINE [Suspect]
     Active Substance: ABACAVIR\LAMIVUDINE
     Indication: Product used for unknown indication
     Dosage: 1 DOSAGE FORMS DAILY; 600 MG/ 300 MG, UNIT DOSE : 1 DOSAGE FORMS, FREQUENCY ; 1, FREQUENCY TIME : 1
     Route: 064
  2. ABACAVIR\LAMIVUDINE [Suspect]
     Active Substance: ABACAVIR\LAMIVUDINE
     Indication: HIV infection
  3. LAMIVUDINE [Suspect]
     Active Substance: LAMIVUDINE
     Indication: Product used for unknown indication
     Dosage: 1 DOSAGE FORMS DAILY;  (DOSE: 1 TABLET/CAPSULE; STRENGTH: 600MG/ 300 MG), UNIT DOSE : 1 DOSAGE FORMS
     Route: 064
  4. LAMIVUDINE [Suspect]
     Active Substance: LAMIVUDINE
     Indication: HIV infection
     Dosage: 1 DOSAGE FORMS DAILY; (TABLET), (DOSE: 1 TABLET/CAPSULE; STRENGTH: 600 MG/ 300 MG), DURING FIRST TRI
     Route: 064
  5. LAMIVUDINE [Suspect]
     Active Substance: LAMIVUDINE
     Dosage: 1 DOSAGE FORMS DAILY; DURING FIRST TRIMESTER;UNIT DOSE : 1 DOSAGE FORMS, FREQUENCY ; 1, FREQUENCY TI
     Route: 064
  6. NEVIRAPINE [Suspect]
     Active Substance: NEVIRAPINE
     Indication: Product used for unknown indication
     Dosage: 400 MILLIGRAM DAILY; UNIT DOSE : 400 MG, FREQUENCY : 1 , FREQUENCY TIME : 1 DAYS
     Route: 064
  7. NEVIRAPINE [Suspect]
     Active Substance: NEVIRAPINE
     Indication: HIV infection
  8. CHOLECALCIFEROL [Suspect]
     Active Substance: CHOLECALCIFEROL
     Indication: Product used for unknown indication
     Dosage: UNK; ;
     Route: 064
  9. CHOLECALCIFEROL [Suspect]
     Active Substance: CHOLECALCIFEROL
     Indication: HIV infection
     Dosage: UNK (1ST TRIMESTER)
     Route: 064
  10. CHOLECALCIFEROL [Suspect]
     Active Substance: CHOLECALCIFEROL
     Dosage: UNK; ;
     Route: 064
  11. ABACAVIR [Suspect]
     Active Substance: ABACAVIR
     Indication: Product used for unknown indication
     Dosage: 400 DOSAGE FORMS DAILY;  (DOSE: 1 TABLET/CAPSULE; STRENGTH: 600 MG/ 300 MG...UNIT DOSE : 400 DOSAGE
     Route: 064
  12. ABACAVIR [Suspect]
     Active Substance: ABACAVIR
     Indication: HIV infection
     Dosage: 400 DOSAGE FORMS DAILY; UNIT DOSE : 400 DOSAGE FORMS, FREQUENCY : 1 , FREQUENCY TIME : 1 DAYS
     Route: 064
  13. ABACAVIR [Suspect]
     Active Substance: ABACAVIR
     Dosage: 400 DOSAGE FORMS DAILY; UNIT DOSE : 400 DOSAGE FORMS, FREQUENCY : 1 , FREQUENCY TIME : 1 DAYS
     Route: 064
  14. ASPIRIN [Suspect]
     Active Substance: ASPIRIN
     Indication: Product used for unknown indication
     Dosage: ,IN FIRST TRIMESTER (00002701), UNIT DOSE : 1 DOSAGE FORMS
     Route: 064
  15. ASPIRIN [Suspect]
     Active Substance: ASPIRIN
     Indication: HIV infection
     Dosage: UNK; ;
     Route: 065
  16. ASPIRIN [Suspect]
     Active Substance: ASPIRIN
     Dosage: UNK ( 1 TRIMESTER); ;
     Route: 064
  17. COMBIVIR [Suspect]
     Active Substance: LAMIVUDINE\ZIDOVUDINE
     Indication: Product used for unknown indication
     Dosage: 900 MILLIGRAM DAILY; UNIT DOSE : 900 MG, FREQUENCY : 1 , FREQUENCY TIME : 1 DAYS
     Route: 064
  18. COMBIVIR [Suspect]
     Active Substance: LAMIVUDINE\ZIDOVUDINE
     Indication: HIV infection
  19. ERGOCALCIFEROL [Suspect]
     Active Substance: ERGOCALCIFEROL
     Indication: Product used for unknown indication
     Dosage: UNK; ;
     Route: 065
  20. ERGOCALCIFEROL [Suspect]
     Active Substance: ERGOCALCIFEROL
     Indication: HIV infection
     Dosage: UNK; ;
     Route: 064
  21. ERGOCALCIFEROL [Suspect]
     Active Substance: ERGOCALCIFEROL
     Dosage: UNK; ;
     Route: 065
  22. LABETALOL [Suspect]
     Active Substance: LABETALOL\LABETALOL HYDROCHLORIDE
     Indication: Hypertension
     Dosage: 1 DOSAGE FORM (1 TRIMESTER); UNIT DOSE : 1 DOSAGE FORMS,
     Route: 064
  23. LABETALOL [Suspect]
     Active Substance: LABETALOL\LABETALOL HYDROCHLORIDE
     Indication: Product used for unknown indication
     Dosage: UNK (39 WEEKS); ;
     Route: 064
  24. LABETALOL [Suspect]
     Active Substance: LABETALOL\LABETALOL HYDROCHLORIDE
     Dosage: UNK; ;
     Route: 064
  25. NIFEDIPINE [Suspect]
     Active Substance: NIFEDIPINE
     Indication: Product used for unknown indication
     Dosage: UNK; ;
     Route: 064
  26. NIFEDIPINE [Suspect]
     Active Substance: NIFEDIPINE
     Indication: Hypertension
     Dosage: UNK; ;
     Route: 065
  27. NIFEDIPINE [Suspect]
     Active Substance: NIFEDIPINE
     Dosage: UNK (1 TRIMESTER); ;
     Route: 064
  28. VIRAMUNE [Suspect]
     Active Substance: NEVIRAPINE
     Indication: Product used for unknown indication
     Dosage: 400 MILLIGRAM DAILY; UNIT DOSE : 400 MG, FREQUENCY : 1 , FREQUENCY TIME : 1 DAYS
     Route: 064
  29. VIRAMUNE [Suspect]
     Active Substance: NEVIRAPINE
     Indication: HIV infection
  30. VITAMIN D [Suspect]
     Active Substance: VITAMIN D NOS
     Indication: Product used for unknown indication
     Dosage: UNK; ;
     Route: 064
  31. VITAMIN D [Suspect]
     Active Substance: VITAMIN D NOS
     Indication: HIV infection
     Dosage: UNK, PRIOR TO CONCEPTION, DURING 1, 2 AND 3 TRIMESTER ( 39 WEEKS)
     Route: 064

REACTIONS (14)
  - Gene mutation [Fatal]
  - Atrioventricular septal defect [Fatal]
  - Polydactyly [Fatal]
  - Pulmonary hypertension [Fatal]
  - Dandy-Walker syndrome [Fatal]
  - Congenital central nervous system anomaly [Fatal]
  - Macrocephaly [Fatal]
  - Speech disorder developmental [Fatal]
  - Attention deficit hyperactivity disorder [Fatal]
  - Death [Fatal]
  - Ataxia [Fatal]
  - Neurodevelopmental disorder [Fatal]
  - Trisomy 21 [Fatal]
  - Foetal exposure during pregnancy [Fatal]

NARRATIVE: CASE EVENT DATE: 20110305
